FAERS Safety Report 8292187-8 (Version None)
Quarter: 2012Q2

REPORT INFORMATION
  Report Type: 
  Country: None (occurrence: None)
  Receive Date: 20120417
  Receipt Date: 20120412
  Transmission Date: 20120825
  Serious: Yes (Hospitalization, Other)
  Sender: FDA-Public Use
  Company Number: US-PFIZER INC-2012092639

PATIENT
  Sex: Female
  Weight: 58.957 kg

DRUGS (10)
  1. LIPITOR [Suspect]
     Dosage: UNK, DAILY
     Route: 048
  2. LASIX [Suspect]
     Indication: SWELLING
     Dosage: 40 MG, DAILY
     Route: 048
  3. CYMBALTA [Concomitant]
     Indication: BACK PAIN
     Dosage: UNK
  4. ZESTRIL [Concomitant]
     Indication: BLOOD PRESSURE ABNORMAL
     Dosage: UNK
  5. LIPITOR [Suspect]
     Indication: BLOOD CHOLESTEROL INCREASED
     Dosage: 10 MG, DAILY
     Route: 048
     Dates: start: 20110101
  6. ATENOLOL [Concomitant]
     Indication: SUPRAVENTRICULAR TACHYCARDIA
     Dosage: UNK
  7. ACETYLSALICYLIC ACID [Concomitant]
     Indication: CEREBROVASCULAR ACCIDENT
     Dosage: UNK
  8. LASIX [Suspect]
     Indication: DYSPNOEA
  9. DIGOXIN [Concomitant]
     Indication: SUPRAVENTRICULAR TACHYCARDIA
     Dosage: UNK
  10. INSULIN [Concomitant]
     Indication: TYPE 2 DIABETES MELLITUS
     Dosage: 100 IU, 2X/DAY

REACTIONS (13)
  - DRUG DISPENSING ERROR [None]
  - ARTHRALGIA [None]
  - MUSCULAR WEAKNESS [None]
  - INCORRECT DOSE ADMINISTERED [None]
  - ACTIVITIES OF DAILY LIVING IMPAIRED [None]
  - HEPATIC ENZYME ABNORMAL [None]
  - MYALGIA [None]
  - BRONCHITIS [None]
  - DYSPNOEA [None]
  - ANAEMIA [None]
  - CHEST PAIN [None]
  - WEIGHT INCREASED [None]
  - CARDIAC FAILURE CONGESTIVE [None]
